FAERS Safety Report 24758577 (Version 1)
Quarter: 2024Q4

REPORT INFORMATION
  Report Type: Spontaneous
  Country: US (occurrence: None)
  Receive Date: 20241219
  Receipt Date: 20241219
  Transmission Date: 20250114
  Serious: Yes (Other)
  Sender: Public
  Company Number: None

PATIENT
  Age: 59 Year

DRUGS (1)
  1. AMBRISENTAN [Suspect]
     Active Substance: AMBRISENTAN
     Indication: Pulmonary hypertension
     Dosage: FREQUENCY : DAILY;?
     Route: 048
     Dates: start: 20240118

REACTIONS (2)
  - Incorrect dose administered [None]
  - Product strength confusion [None]

NARRATIVE: CASE EVENT DATE: 20241219
